FAERS Safety Report 8256720-4 (Version None)
Quarter: 2012Q2

REPORT INFORMATION
  Report Type: 
  Country: None (occurrence: None)
  Receive Date: 20120403
  Receipt Date: 20120326
  Transmission Date: 20120825
  Serious: Yes (Other)
  Sender: FDA-Public Use
  Company Number: DE-ABBOTT-11P-062-0880734-00

PATIENT
  Sex: Male
  Weight: 84 kg

DRUGS (7)
  1. SULFASALAZINE [Concomitant]
     Indication: CROHN'S DISEASE
  2. CALCIUM CARBONATE [Concomitant]
     Indication: PRODUCT USED FOR UNKNOWN INDICATION
     Route: 048
     Dates: start: 20100601
  3. MESALAZINE (SALOFALK) [Concomitant]
     Indication: CROHN'S DISEASE
  4. GRANUSTIX [Concomitant]
     Indication: PRODUCT USED FOR UNKNOWN INDICATION
     Dates: start: 20110501
  5. HUMIRA [Suspect]
     Indication: CROHN'S DISEASE
     Route: 058
     Dates: start: 20110829, end: 20120305
  6. MUTAFLOR [Concomitant]
     Indication: CROHN'S DISEASE
  7. LOSARTAN POTASSIUM [Concomitant]
     Indication: PRODUCT USED FOR UNKNOWN INDICATION
     Dates: start: 20091201

REACTIONS (7)
  - NEOPLASM [None]
  - GASTROENTERITIS NOROVIRUS [None]
  - INFLAMMATION [None]
  - HYPOAESTHESIA [None]
  - PRURITUS [None]
  - GAIT DISTURBANCE [None]
  - SPINAL DISORDER [None]
